FAERS Safety Report 17424211 (Version 2)
Quarter: 2020Q1

REPORT INFORMATION
  Report Type: Spontaneous
  Country: JP (occurrence: JP)
  Receive Date: 20200217
  Receipt Date: 20200319
  Transmission Date: 20200409
  Serious: Yes (Hospitalization, Other)
  Sender: FDA-Public Use
  Company Number: JP-DSJP-DSJ-2020-105070AA

PATIENT

DRUGS (2)
  1. OLMETEC OD [Suspect]
     Active Substance: OLMESARTAN MEDOXOMIL
     Indication: ESSENTIAL HYPERTENSION
     Dosage: 10MG/DAY
     Route: 065
  2. CALBLOCK [Suspect]
     Active Substance: AZELNIDIPINE
     Indication: ESSENTIAL HYPERTENSION
     Dosage: 8MG/DAY
     Route: 065

REACTIONS (2)
  - Renal impairment [Unknown]
  - Pneumonia [Recovering/Resolving]
